FAERS Safety Report 21749302 (Version 1)
Quarter: 2022Q4

REPORT INFORMATION
  Report Type: Spontaneous
  Country: IT (occurrence: IT)
  Receive Date: 20221219
  Receipt Date: 20221219
  Transmission Date: 20230113
  Serious: Yes (Hospitalization)
  Sender: FDA-Public Use
  Company Number: None

PATIENT
  Age: 66 Year
  Sex: Male

DRUGS (6)
  1. LEVETIRACETAM [Suspect]
     Active Substance: LEVETIRACETAM
     Indication: Epilepsy
     Dosage: 250 MILLIGRAM, BID, 250 MG TWICE/DAY
     Route: 048
     Dates: start: 20221013, end: 20221013
  2. RIVOTRIL [Concomitant]
     Active Substance: CLONAZEPAM
     Indication: Epilepsy
     Dosage: 2 MILLIGRAM,QD, 2MG ONCE/DAY
     Route: 048
  3. PERICIAZINE [Concomitant]
     Active Substance: PERICIAZINE
     Indication: Psychotic disorder
     Dosage: 10 MILLIGRAM,QD,10MG ONCE/DAY
     Route: 048
     Dates: start: 19700101
  4. LYRICA [Concomitant]
     Active Substance: PREGABALIN
     Indication: Epilepsy
     Dosage: 75 MILLIGRAM, TID, 75MG X 3 TIMES/DAY
     Route: 048
  5. JANUVIA [Concomitant]
     Active Substance: SITAGLIPTIN PHOSPHATE
     Indication: Type 2 diabetes mellitus
     Dosage: 100 MILLIGRAM,QD, 100MG ONCE/DAY
     Route: 048
  6. Luvion [Concomitant]
     Indication: Hyperaldosteronism
     Dosage: 100 MILLIGRAM,QD,100MG ONCE/DAY
     Route: 048

REACTIONS (1)
  - Hyponatraemia [Recovering/Resolving]

NARRATIVE: CASE EVENT DATE: 20221013
